FAERS Safety Report 21995832 (Version 1)
Quarter: 2023Q1

REPORT INFORMATION
  Report Type: Spontaneous
  Country: BR (occurrence: None)
  Receive Date: 20230215
  Receipt Date: 20230215
  Transmission Date: 20230417
  Serious: Yes (Other)
  Sender: FDA-Public Use
  Company Number: 2023A034455

PATIENT
  Sex: Female

DRUGS (1)
  1. LYNPARZA [Suspect]
     Active Substance: OLAPARIB
     Indication: Ovarian cancer
     Dosage: ONCE IN THE AFTERNOON AND ONCE AT NIGHT
     Route: 048
     Dates: start: 2020, end: 202212

REACTIONS (3)
  - Neoplasm malignant [Not Recovered/Not Resolved]
  - Ovarian cancer recurrent [Unknown]
  - Drug ineffective [Unknown]
